FAERS Safety Report 15517119 (Version 1)
Quarter: 2018Q4

REPORT INFORMATION
  Report Type: Spontaneous
  Country: US (occurrence: US)
  Receive Date: 20181017
  Receipt Date: 20181017
  Transmission Date: 20190205
  Serious: Yes (Life-Threatening, Disabling)
  Sender: FDA-Public Use
  Company Number: US-ROCHE-2200869

PATIENT
  Sex: Male

DRUGS (1)
  1. ACTIVASE [Suspect]
     Active Substance: ALTEPLASE
     Indication: THROMBECTOMY
     Dosage: ONGOING: NO
     Route: 042
     Dates: start: 20181004, end: 20181005

REACTIONS (5)
  - Off label use [Unknown]
  - Hemiplegia [Not Recovered/Not Resolved]
  - Intentional product use issue [Unknown]
  - Cerebrovascular accident [Not Recovered/Not Resolved]
  - Cerebral haemorrhage [Not Recovered/Not Resolved]

NARRATIVE: CASE EVENT DATE: 20181005
